FAERS Safety Report 4781178-7 (Version None)
Quarter: 2005Q3

REPORT INFORMATION
  Report Type: 
  Country: None (occurrence: None)
  Receive Date: 20050928
  Receipt Date: 20050916
  Transmission Date: 20060218
  Serious: Yes (Other)
  Sender: FDA-Public Use
  Company Number: SE-BRISTOL-MYERS SQUIBB COMPANY-13112651

PATIENT
  Age: 35 Year
  Sex: Female

DRUGS (3)
  1. VIDEX [Suspect]
     Indication: HIV INFECTION
     Dates: start: 20010901, end: 20040801
  2. EPIVIR [Suspect]
     Indication: HIV INFECTION
     Dates: end: 20040101
  3. VIREAD [Suspect]
     Indication: HIV INFECTION
     Dates: end: 20040101

REACTIONS (4)
  - ASCITES [None]
  - BLOOD ALBUMIN DECREASED [None]
  - BLOOD LACTIC ACID INCREASED [None]
  - RETINAL DISORDER [None]
